FAERS Safety Report 7418053-5 (Version None)
Quarter: 2011Q2

REPORT INFORMATION
  Report Type: 
  Country: None (occurrence: None)
  Receive Date: 20110415
  Receipt Date: 20110405
  Transmission Date: 20111010
  Serious: Yes (Hospitalization)
  Sender: FDA-Public Use
  Company Number: IT-ROCHE-771065

PATIENT
  Sex: Male

DRUGS (2)
  1. SYNFLEX FORTE [Suspect]
     Dosage: FORM: COATED TABLET, TAB_FILM.  FREQUENCY: UNKNOWN.
     Route: 048
     Dates: start: 20110331, end: 20110331
  2. AULIN [Concomitant]
     Route: 048
     Dates: start: 20110331, end: 20110331

REACTIONS (4)
  - URTICARIA [None]
  - DYSPNOEA [None]
  - PRURITUS GENERALISED [None]
  - THROAT TIGHTNESS [None]
